FAERS Safety Report 5922017-8 (Version None)
Quarter: 2008Q4

REPORT INFORMATION
  Report Type: 
  Country: None (occurrence: None)
  Receive Date: 20081017
  Receipt Date: 20081014
  Transmission Date: 20090506
  Serious: Yes (Death, Hospitalization)
  Sender: FDA-Public Use
  Company Number: A0751811A

PATIENT
  Sex: Male

DRUGS (4)
  1. ADVAIR DISKUS 100/50 [Suspect]
     Indication: CHRONIC OBSTRUCTIVE PULMONARY DISEASE
     Route: 055
     Dates: start: 20080401, end: 20080828
  2. PROCARDIA [Suspect]
     Dates: end: 20080828
  3. UNSPECIFIED MEDICATION [Concomitant]
  4. PROTONIX [Concomitant]

REACTIONS (1)
  - DEATH [None]
